FAERS Safety Report 23426693 (Version 1)
Quarter: 2024Q1

REPORT INFORMATION
  Report Type: Spontaneous
  Country: US (occurrence: US)
  Receive Date: 20240122
  Receipt Date: 20240122
  Transmission Date: 20240410
  Serious: Yes (Hospitalization, Other)
  Sender: FDA-Public Use
  Company Number: US-MLMSERVICE-20240104-4758703-1

PATIENT
  Age: 60 Year
  Sex: Male

DRUGS (4)
  1. TACROLIMUS [Suspect]
     Active Substance: TACROLIMUS
     Indication: Immunosuppressant drug therapy
     Route: 065
     Dates: start: 2021
  2. MYCOPHENOLIC ACID [Suspect]
     Active Substance: MYCOPHENOLIC ACID
     Indication: Immunosuppressant drug therapy
     Route: 065
     Dates: start: 2021
  3. MYCOPHENOLIC ACID [Suspect]
     Active Substance: MYCOPHENOLIC ACID
     Route: 065
     Dates: start: 2021
  4. PREDNISONE [Suspect]
     Active Substance: PREDNISONE
     Indication: Immunosuppressant drug therapy
     Route: 065
     Dates: start: 2021

REACTIONS (3)
  - Cytomegalovirus infection reactivation [Recovered/Resolved]
  - Inflammatory bowel disease [Recovering/Resolving]
  - Cytomegalovirus colitis [Recovered/Resolved]

NARRATIVE: CASE EVENT DATE: 20210101
